FAERS Safety Report 6290457 (Version 3)
Quarter: 2021Q4

REPORT INFORMATION
  Report Type: Spontaneous
  Country: NL (occurrence: NL)
  Receive Date: 20070417
  Receipt Date: 20211005
  Transmission Date: 20220303
  Serious: Yes (Death, Other)
  Sender: FDA-Public Use
  Company Number: NL-PFIZER INC-2007027599

PATIENT
  Age: 60 Year
  Sex: Male

DRUGS (4)
  1. PHENYTOIN [Suspect]
     Active Substance: PHENYTOIN
     Indication: Seizure
     Dosage: 150 MG, 2X/DAY
  2. VALPROATE [Suspect]
     Active Substance: VALPROIC ACID
     Indication: Epilepsy
     Dosage: 400 MG, 3X/DAY
     Route: 042
  3. MIDAZOLAM [Concomitant]
     Active Substance: MIDAZOLAM
  4. PROPOFOL [Concomitant]
     Active Substance: PROPOFOL

REACTIONS (6)
  - Coma [Fatal]
  - Multiple organ dysfunction syndrome [Fatal]
  - Toxicity to various agents [Fatal]
  - Anticonvulsant drug level increased [Fatal]
  - Nervous system disorder [Unknown]
  - Hypoalbuminaemia [Unknown]
